FAERS Safety Report 5745326-4 (Version None)
Quarter: 2008Q2

REPORT INFORMATION
  Report Type: 
  Country: None (occurrence: None)
  Receive Date: 20080521
  Receipt Date: 20080513
  Transmission Date: 20081010
  Serious: Yes (Hospitalization, Other)
  Sender: FDA-Public Use
  Company Number: US-MERCK-0805USA02897

PATIENT
  Age: 48 Year
  Sex: Male

DRUGS (16)
  1. JANUVIA [Suspect]
     Indication: DIABETES MELLITUS
     Route: 048
     Dates: start: 20080301, end: 20080416
  2. GLYBURIDE [Concomitant]
     Route: 065
  3. HYDRALAZINE [Concomitant]
     Route: 065
  4. BUMEX [Concomitant]
     Route: 065
  5. TOPROL-XL [Concomitant]
     Route: 065
  6. RESTORIL [Concomitant]
     Route: 065
  7. ZOCOR [Concomitant]
     Route: 048
  8. ZOLOFT [Concomitant]
     Route: 065
  9. IMDUR [Concomitant]
     Route: 065
  10. FLOMAX (MORNIFLUMATE) [Concomitant]
     Route: 065
  11. VITAMINS (UNSPECIFIED) [Concomitant]
     Route: 065
  12. VITAMIN B COMPLEX [Concomitant]
     Route: 065
  13. VITAMIN E [Concomitant]
     Route: 065
  14. ASCORBIC ACID [Concomitant]
     Route: 065
  15. PYRIDOXINE [Concomitant]
     Route: 065
  16. CYANOCOBALAMIN [Concomitant]
     Route: 048

REACTIONS (2)
  - ANAEMIA [None]
  - THROMBOCYTOPENIA [None]
